FAERS Safety Report 24082103 (Version 2)
Quarter: 2024Q3

REPORT INFORMATION
  Report Type: Report from Study
  Country: CA (occurrence: CA)
  Receive Date: 20240712
  Receipt Date: 20240718
  Transmission Date: 20241017
  Serious: Yes (Hospitalization, Other)
  Sender: JOHNSON AND JOHNSON
  Company Number: CA-JNJFOC-20230300522

PATIENT
  Age: 5 Decade
  Sex: Female
  Weight: 93.2 kg

DRUGS (3)
  1. STELARA [Suspect]
     Active Substance: USTEKINUMAB
     Indication: Crohn^s disease
     Route: 058
     Dates: start: 20220302
  2. STELARA [Suspect]
     Active Substance: USTEKINUMAB
     Route: 058
     Dates: end: 20230621
  3. STELARA [Suspect]
     Active Substance: USTEKINUMAB
     Route: 040

REACTIONS (5)
  - Laryngitis [Unknown]
  - Rotator cuff repair [Unknown]
  - Inflammation [Recovering/Resolving]
  - Product dose omission issue [Unknown]
  - Off label use [Unknown]
